FAERS Safety Report 14278381 (Version 1)
Quarter: 2017Q4

REPORT INFORMATION
  Report Type: Spontaneous
  Country: US (occurrence: US)
  Receive Date: 20171211
  Receipt Date: 20171211
  Transmission Date: 20180321
  Serious: Yes (Hospitalization, Other)
  Sender: FDA-Public Use
  Company Number: US-OTSUKA-15213069

PATIENT
  Age: 53 Year
  Sex: Female

DRUGS (6)
  1. CLONAZEPAM. [Suspect]
     Active Substance: CLONAZEPAM
     Dosage: 1 DF= 0.5 MG, 1/2TAB.
  2. RESTORIL [Suspect]
     Active Substance: TEMAZEPAM
     Indication: SLEEP DISORDER
     Dosage: EVERY NIGHT
  3. CELEXA [Suspect]
     Active Substance: CITALOPRAM HYDROBROMIDE
     Dosage: 1 1/2 TAB
  4. ABILIFY [Suspect]
     Active Substance: ARIPIPRAZOLE
     Indication: DEPRESSION
  5. LITHIUM. [Suspect]
     Active Substance: LITHIUM
     Dosage: 300 MG, UNK
  6. ABILIFY [Suspect]
     Active Substance: ARIPIPRAZOLE
     Indication: MOOD SWINGS
     Dosage: 5 MG, QD
     Route: 048
     Dates: start: 20100526

REACTIONS (1)
  - Pulmonary embolism [Unknown]

NARRATIVE: CASE EVENT DATE: 201006
